FAERS Safety Report 7987969-3 (Version None)
Quarter: 2011Q4

REPORT INFORMATION
  Report Type: 
  Country: None (occurrence: None)
  Receive Date: 20111216
  Receipt Date: 20110906
  Transmission Date: 20120403
  Serious: Yes (Other)
  Sender: FDA-Public Use
  Company Number: US-BRISTOL-MYERS SQUIBB COMPANY-15751233

PATIENT
  Age: 46 Year
  Sex: Female

DRUGS (11)
  1. LEXAPRO [Concomitant]
  2. SINGULAIR [Concomitant]
  3. TIZANIDINE HCL [Suspect]
  4. CYMBALTA [Concomitant]
  5. ZYRTEC [Concomitant]
  6. TRAZODONE HCL [Concomitant]
  7. ADVAIR DISKUS 100/50 [Concomitant]
  8. LORAZEPAM [Concomitant]
  9. LYRICA [Concomitant]
  10. ADDERALL 5 [Concomitant]
  11. ABILIFY [Suspect]
     Indication: MAJOR DEPRESSION
     Dosage: DOSE INCREASED TO 5MG ON 15JUN10 27OCT09 2MG 12APR10-16MAY11 5MG
     Route: 048
     Dates: start: 20091027, end: 20110516

REACTIONS (1)
  - TARDIVE DYSKINESIA [None]
